FAERS Safety Report 10218890 (Version 3)
Quarter: 2014Q2

REPORT INFORMATION
  Report Type: Spontaneous
  Country: US (occurrence: US)
  Receive Date: 20140605
  Receipt Date: 20140620
  Transmission Date: 20141212
  Serious: No
  Sender: FDA-Public Use
  Company Number: US-PFIZER INC-2014148518

PATIENT
  Age: 58 Year
  Sex: Female
  Weight: 81.63 kg

DRUGS (6)
  1. LYRICA [Suspect]
     Indication: FIBROMYALGIA
     Dosage: 150 MG, 2X/DAY
     Route: 048
     Dates: start: 2011, end: 201405
  2. METOPROLOL [Concomitant]
     Indication: HYPERTENSION
     Dosage: 100 MG, UNK
  3. TRAMADOL [Concomitant]
     Dosage: UNK
  4. EFFEXOR [Concomitant]
     Dosage: 75 MG, UNK
  5. LORTAB [Concomitant]
     Dosage: 5 MG, UNK
  6. ULTRAM [Concomitant]
     Dosage: 50 MG, UNK

REACTIONS (1)
  - Pain [Unknown]
